FAERS Safety Report 21898891 (Version 1)
Quarter: 2023Q1

REPORT INFORMATION
  Report Type: Spontaneous
  Country: FR (occurrence: FR)
  Receive Date: 20230123
  Receipt Date: 20230123
  Transmission Date: 20230417
  Serious: Yes (Life-Threatening)
  Sender: FDA-Public Use
  Company Number: FR-AstraZeneca-2022A399314

PATIENT
  Age: 82 Year
  Sex: Male

DRUGS (2)
  1. METFORMIN [Suspect]
     Active Substance: METFORMIN HYDROCHLORIDE
     Indication: Type 2 diabetes mellitus
     Dosage: 5 MILLIGRAM, QD
     Route: 065
  2. XIGDUO XR [Suspect]
     Active Substance: DAPAGLIFLOZIN PROPANEDIOL\METFORMIN HYDROCHLORIDE
     Indication: Type 2 diabetes mellitus
     Dosage: 5 MG DAPAGLIFLOZIN AND 1000 MG METFORMIN
     Route: 048

REACTIONS (7)
  - Lactic acidosis [Recovering/Resolving]
  - Cardiac arrest [Recovered/Resolved]
  - Acute kidney injury [Recovering/Resolving]
  - Respiratory distress [Recovering/Resolving]
  - Overdose [Unknown]
  - Hyperkalaemia [Recovering/Resolving]
  - Product prescribing error [Unknown]
